FAERS Safety Report 9357905 (Version 5)
Quarter: 2014Q2

REPORT INFORMATION
  Report Type: Spontaneous
  Country: US (occurrence: US)
  Receive Date: 20130620
  Receipt Date: 20140515
  Transmission Date: 20141212
  Serious: Yes (Hospitalization, Disabling, Other)
  Sender: FDA-Public Use
  Company Number: US-009507513-1306USA008234

PATIENT
  Sex: Female

DRUGS (16)
  1. FOSAMAX [Suspect]
     Indication: OSTEOPOROSIS
     Dosage: 35 MG, UNK
     Route: 048
     Dates: start: 2003, end: 2007
  2. FOSAMAX [Suspect]
     Indication: OSTEOPENIA
  3. FOSAMAX [Suspect]
     Indication: OSTEOPOROSIS PROPHYLAXIS
  4. ACTONEL [Suspect]
     Indication: OSTEOPOROSIS
     Dosage: 75 MG, UNK
     Route: 048
     Dates: start: 2009, end: 2011
  5. ACTONEL [Suspect]
     Indication: OSTEOPENIA
  6. ACTONEL [Suspect]
     Indication: OSTEOPOROSIS PROPHYLAXIS
  7. ALENDRONATE SODIUM [Suspect]
     Indication: OSTEOPOROSIS
     Dosage: 70 MG, UNK
     Route: 048
     Dates: start: 2009, end: 2011
  8. ALENDRONATE SODIUM [Suspect]
     Indication: OSTEOPENIA
  9. ALENDRONATE SODIUM [Suspect]
     Indication: OSTEOPOROSIS PROPHYLAXIS
  10. NEXIUM [Concomitant]
     Dosage: UNK
     Dates: start: 1990, end: 2008
  11. OMEPRAZOLE [Concomitant]
     Indication: GASTROOESOPHAGEAL REFLUX DISEASE
     Dosage: UNK
     Dates: start: 2011, end: 2012
  12. ATENOLOL [Concomitant]
     Indication: HYPERTENSION
     Dosage: UNK
     Dates: start: 1980
  13. DILTIAZEM HYDROCHLORIDE [Concomitant]
     Indication: HYPERTENSION
     Dosage: UNK
     Dates: start: 1980
  14. CARDIZEM CD [Concomitant]
     Indication: HYPERTENSION
     Dosage: UNK
     Dates: start: 1980
  15. DIOVAN [Concomitant]
     Indication: HYPERTENSION
     Dosage: UNK
     Dates: start: 1980
  16. PRAVASTATIN SODIUM [Concomitant]
     Indication: BLOOD CHOLESTEROL INCREASED
     Dosage: UNK
     Dates: start: 1990

REACTIONS (16)
  - Internal fixation of fracture [Unknown]
  - Femur fracture [Unknown]
  - Femur fracture [Unknown]
  - Low turnover osteopathy [Not Recovered/Not Resolved]
  - Impaired healing [Unknown]
  - Bursitis [Unknown]
  - Tendonitis [Unknown]
  - Sinusitis [Unknown]
  - Arthritis [Unknown]
  - Facet joint syndrome [Unknown]
  - Spondylitis [Unknown]
  - Spinal cord injury [Unknown]
  - Intervertebral disc protrusion [Unknown]
  - Intervertebral disc protrusion [Unknown]
  - Intervertebral disc protrusion [Unknown]
  - Device failure [Unknown]
